FAERS Safety Report 16742112 (Version 1)
Quarter: 2019Q4

REPORT INFORMATION
  Report Type: Spontaneous
  Country: US (occurrence: US)
  Receive Date: 20190826
  Receipt Date: 20190826
  Transmission Date: 20200122
  Serious: Yes (Other)
  Sender: FDA-Public Use
  Company Number: None

PATIENT
  Age: 41 Year
  Sex: Female
  Weight: 57.15 kg

DRUGS (2)
  1. MEDROXYPROGESTERONE 150 MG/ML [Suspect]
     Active Substance: MEDROXYPROGESTERONE
  2. MEDROXYPROGESTERONE 150 MG/ML INTRAMUSCULAR SUSPENSION [Suspect]
     Active Substance: MEDROXYPROGESTERONE
     Dates: start: 20180501, end: 20190806

REACTIONS (4)
  - Abdominal discomfort [None]
  - Nausea [None]
  - Pregnancy with injectable contraceptive [None]
  - Exposure during pregnancy [None]

NARRATIVE: CASE EVENT DATE: 20190806
